FAERS Safety Report 20833092 (Version 1)
Quarter: 2022Q2

REPORT INFORMATION
  Report Type: Spontaneous
  Country: US (occurrence: None)
  Receive Date: 20220514
  Receipt Date: 20220514
  Transmission Date: 20220720
  Serious: Yes (Hospitalization)
  Sender: FDA-Public Use
  Company Number: None

PATIENT
  Sex: Male
  Weight: 49.4 kg

DRUGS (6)
  1. CYTARABINE [Suspect]
     Active Substance: CYTARABINE
  2. SPRYCEL [Concomitant]
     Active Substance: DASATINIB
  3. MESNA [Concomitant]
  4. METHOTREXATE [Concomitant]
  5. PREDNISONE [Concomitant]
     Active Substance: PREDNISONE
  6. VINCRISTINE SULFATE [Concomitant]

REACTIONS (11)
  - Anaemia [None]
  - Fatigue [None]
  - Dizziness [None]
  - Diarrhoea [None]
  - Flatulence [None]
  - Faeces discoloured [None]
  - Occult blood positive [None]
  - Gastrointestinal mucosa hyperaemia [None]
  - Diverticulum [None]
  - Haemorrhoids [None]
  - Platelet count decreased [None]

NARRATIVE: CASE EVENT DATE: 20210322
